FAERS Safety Report 17644407 (Version 1)
Quarter: 2020Q2

REPORT INFORMATION
  Report Type: Spontaneous
  Country: US (occurrence: US)
  Receive Date: 20200408
  Receipt Date: 20200408
  Transmission Date: 20200713
  Serious: Yes (Life-Threatening, Hospitalization)
  Sender: FDA-Public Use
  Company Number: None

PATIENT
  Age: 39 Year
  Sex: Male
  Weight: 49.2 kg

DRUGS (1)
  1. CLOZAPINE 200MG [Suspect]
     Active Substance: CLOZAPINE
     Indication: SCHIZOPHRENIA
     Route: 048
     Dates: start: 20200311, end: 20200402

REACTIONS (12)
  - Deep vein thrombosis [None]
  - Drug ineffective [None]
  - Hyperhidrosis [None]
  - Heart rate irregular [None]
  - Oxygen saturation decreased [None]
  - Pulmonary embolism [None]
  - Pain in extremity [None]
  - Peripheral coldness [None]
  - Chest pain [None]
  - Extrapyramidal disorder [None]
  - Hallucination [None]
  - Dyspnoea [None]

NARRATIVE: CASE EVENT DATE: 20200402
